FAERS Safety Report 6307725-1 (Version None)
Quarter: 2009Q3

REPORT INFORMATION
  Report Type: 
  Country: None (occurrence: None)
  Receive Date: 20090813
  Receipt Date: 20090805
  Transmission Date: 20100115
  Serious: Yes (Other)
  Sender: FDA-Public Use
  Company Number: US-BAYER-200912702BCC

PATIENT
  Age: 76 Year
  Sex: Male

DRUGS (9)
  1. ASPIRIN [Suspect]
     Indication: DRUG USE FOR UNKNOWN INDICATION
     Route: 048
     Dates: end: 20090702
  2. PLAVIX [Suspect]
     Indication: CORONARY ARTERY BYPASS
     Dosage: TOTAL DAILY DOSE: 75 MG  UNIT DOSE: 75 MG
     Route: 048
     Dates: end: 20090702
  3. SYNTHROID [Concomitant]
     Dosage: TOTAL DAILY DOSE: 112 ?G  UNIT DOSE: 112 ?G
     Route: 048
  4. NORVASC [Concomitant]
     Dosage: TOTAL DAILY DOSE: 5 MG  UNIT DOSE: 5 MG
     Route: 048
  5. HYDROCHLOROTHIAZIDE [Concomitant]
     Dosage: TOTAL DAILY DOSE: 25 MG  UNIT DOSE: 25 MG
     Route: 048
  6. DIOVAN [Concomitant]
     Dosage: TOTAL DAILY DOSE: 80 MG  UNIT DOSE: 80 MG
     Route: 048
  7. ALLOPURINOL [Concomitant]
     Dosage: TOTAL DAILY DOSE: 300 MG  UNIT DOSE: 300 MG
     Route: 048
  8. FLOMAX [Concomitant]
     Dosage: TOTAL DAILY DOSE: 0.4 MG  UNIT DOSE: 0.4 MG
     Route: 048
  9. LIPITOR [Concomitant]
     Dosage: TOTAL DAILY DOSE: 80 MG  UNIT DOSE: 80 MG
     Route: 048

REACTIONS (1)
  - THROMBOCYTOPENIA [None]
